FAERS Safety Report 8611358 (Version 3)
Quarter: 2013Q1

REPORT INFORMATION
  Report Type: Spontaneous
  Country: CO (occurrence: CO)
  Receive Date: 20120613
  Receipt Date: 20130322
  Transmission Date: 20140127
  Serious: Yes (Disabling, Other)
  Sender: FDA-Public Use
  Company Number: CO-AMGEN-COLCT2011057526

PATIENT
  Age: 50 Year
  Sex: Female

DRUGS (20)
  1. ENBREL [Suspect]
     Indication: PSORIATIC ARTHROPATHY
     Dosage: 50 MG, WEEKLY
     Route: 058
     Dates: start: 20111024
  2. FLUOXETINE [Concomitant]
     Dosage: UNK
  3. LORAZEPAM [Concomitant]
     Dosage: UNK
  4. TRAZODONE [Concomitant]
     Dosage: UNK
  5. METFORMIN [Concomitant]
     Indication: DIABETES MELLITUS
     Dosage: 850 MG, 2X/DAY
     Route: 048
     Dates: start: 2009
  6. ISONIAZIDE [Concomitant]
     Indication: PSORIATIC ARTHROPATHY
     Dosage: 100 MG, 1X/DAY
     Route: 048
     Dates: start: 20100201
  7. PYRIDOXINE [Concomitant]
     Dosage: UNK
  8. LORATADINE [Concomitant]
     Dosage: 10 MG, UNK
  9. CEFALEXIN [Concomitant]
     Dosage: UNK
  10. LOVASTATIN [Concomitant]
     Dosage: 20 MG, UNK
  11. CLONAZEPAM [Concomitant]
     Dosage: UNK
  12. INSULIN [Concomitant]
     Dosage: 10 MG, 1X/DAY
  13. INSULIN [Concomitant]
     Dosage: UNK
  14. LEVOTHYROXINE [Concomitant]
     Indication: HYPOTHYROIDISM
     Dosage: 50 MG, 1X/DAY
     Route: 048
     Dates: start: 2009
  15. QUINIDINE [Concomitant]
     Dosage: 50 MG, UNK
  16. MIRTAZAPINE [Concomitant]
     Dosage: 20 MG, UNK
  17. DULOXETINE [Concomitant]
     Dosage: 60 MG, UNK
  18. INSULIN SUSPENSION, NPH [Concomitant]
     Indication: DIABETES MELLITUS
     Dosage: 39 IU, 2X/DAY
     Route: 023
     Dates: start: 2012
  19. OMEPRAZOL                          /00661201/ [Concomitant]
     Dosage: 20 MG, UNK
  20. METHOTREXATE [Concomitant]
     Dosage: 15 MG, WEEKLY
     Route: 065

REACTIONS (10)
  - Dysstasia [Not Recovered/Not Resolved]
  - Pain in extremity [Not Recovered/Not Resolved]
  - Back pain [Not Recovered/Not Resolved]
  - Muscle spasms [Not Recovered/Not Resolved]
  - Pyrexia [Not Recovered/Not Resolved]
  - Arthralgia [Not Recovered/Not Resolved]
  - Mobility decreased [Unknown]
  - Drug ineffective [Not Recovered/Not Resolved]
  - Rheumatoid arthritis [Not Recovered/Not Resolved]
  - Psoriasis [Unknown]
